FAERS Safety Report 7832096-9 (Version None)
Quarter: 2011Q4

REPORT INFORMATION
  Report Type: 
  Country: None (occurrence: None)
  Receive Date: 20111022
  Receipt Date: 20100616
  Transmission Date: 20120403
  Serious: No
  Sender: FDA-Public Use
  Company Number: US-BAYER-201026004NA

PATIENT
  Age: 44 Year
  Sex: Female

DRUGS (4)
  1. PROTONIX [Concomitant]
  2. XANAX [Concomitant]
  3. CIPROFLOXACIN [Suspect]
     Indication: BRONCHITIS
     Dosage: UNK
     Route: 048
     Dates: start: 20100401
  4. SYNTHROID [Concomitant]

REACTIONS (2)
  - NECK PAIN [None]
  - PARAESTHESIA [None]
